FAERS Safety Report 10365627 (Version 1)
Quarter: 2014Q3

REPORT INFORMATION
  Report Type: Spontaneous
  Country: DK (occurrence: DK)
  Receive Date: 20140806
  Receipt Date: 20140806
  Transmission Date: 20150326
  Serious: Yes (Other)
  Sender: FDA-Public Use
  Company Number: DK-CELGENEUS-044-21880-14075246

PATIENT

DRUGS (3)
  1. DEXAMETHASONE. [Concomitant]
     Active Substance: DEXAMETHASONE
     Indication: PLASMA CELL MYELOMA
     Dosage: 40 MILLIGRAM
     Route: 065
  2. REVLIMID [Suspect]
     Active Substance: LENALIDOMIDE
     Indication: PLASMA CELL MYELOMA
     Route: 048
  3. DARATUMUMAB [Concomitant]
     Indication: PLASMA CELL MYELOMA
     Dosage: 2 MILLIGRAM/SQ. METER
     Route: 041

REACTIONS (2)
  - Electrocardiogram QT prolonged [Unknown]
  - Hypokalaemia [Unknown]
